FAERS Safety Report 22180052 (Version 2)
Quarter: 2023Q2

REPORT INFORMATION
  Report Type: Spontaneous
  Country: US (occurrence: US)
  Receive Date: 20230406
  Receipt Date: 20230420
  Transmission Date: 20230721
  Serious: No
  Sender: FDA-Public Use
  Company Number: US-LUPIN PHARMACEUTICALS INC.-2023-02570

PATIENT

DRUGS (1)
  1. ALBUTEROL SULFATE [Suspect]
     Active Substance: ALBUTEROL SULFATE
     Indication: Asthma
     Dosage: UNK UNK, QD (12 DOSES IN A DAY)
     Dates: start: 20230226

REACTIONS (3)
  - Dyspnoea [Recovered/Resolved]
  - Device delivery system issue [Recovered/Resolved]
  - Drug dose omission by device [Unknown]
